FAERS Safety Report 22111043 (Version 1)
Quarter: 2023Q1

REPORT INFORMATION
  Report Type: Spontaneous
  Country: RU (occurrence: None)
  Receive Date: 20230317
  Receipt Date: 20230317
  Transmission Date: 20230417
  Serious: Yes (Life-Threatening)
  Sender: FDA-Public Use
  Company Number: 2023A060603

PATIENT
  Age: 34 Year
  Sex: Male
  Weight: 80 kg

DRUGS (11)
  1. BRILINTA [Suspect]
     Active Substance: TICAGRELOR
     Indication: Myocardial infarction
     Dosage: 180.0MG UNKNOWN
     Route: 048
     Dates: start: 20221003
  2. AGGRASTAT [Concomitant]
     Active Substance: TIROFIBAN HYDROCHLORIDE
     Dates: start: 20221003
  3. SODIUM CHLORIDE [Concomitant]
     Active Substance: SODIUM CHLORIDE
     Dates: start: 20221003
  4. PROPOFOL [Concomitant]
     Active Substance: PROPOFOL
     Dates: start: 20221003
  5. METOPROLOL [Concomitant]
     Active Substance: METOPROLOL
     Dates: start: 20221003
  6. ENOXAPARIN [Concomitant]
     Active Substance: ENOXAPARIN
     Dates: start: 20221003
  7. HEPARIN [Concomitant]
     Active Substance: HEPARIN SODIUM
     Dates: start: 20221003
  8. ASPIRIN [Concomitant]
     Active Substance: ASPIRIN
     Route: 048
     Dates: start: 20221003
  9. AMIODARONE [Concomitant]
     Active Substance: AMIODARONE
     Dates: start: 20221003
  10. PRESTARIUM (PERINDOPRIL) [Concomitant]
     Route: 048
     Dates: start: 20221003
  11. CLOPIDOGREL [Concomitant]
     Active Substance: CLOPIDOGREL BISULFATE
     Route: 048
     Dates: start: 20221003

REACTIONS (2)
  - Vascular stent thrombosis [Recovering/Resolving]
  - Drug ineffective [Recovering/Resolving]

NARRATIVE: CASE EVENT DATE: 20221003
